FAERS Safety Report 6279927-4 (Version None)
Quarter: 2009Q3

REPORT INFORMATION
  Report Type: 
  Country: None (occurrence: None)
  Receive Date: 20090723
  Receipt Date: 20090306
  Transmission Date: 20100115
  Serious: No
  Sender: FDA-Public Use
  Company Number: US-AMGEN-KDL337511

PATIENT
  Sex: Female
  Weight: 38.6 kg

DRUGS (9)
  1. PROCRIT [Suspect]
     Indication: ANAEMIA
     Dates: start: 20070101
  2. TAMOXIFEN CITRATE [Concomitant]
  3. ISOSORBIDE DINITRATE [Concomitant]
  4. PLAVIX [Concomitant]
  5. METOPROLOL SUCCINATE [Concomitant]
  6. OMEPRAZOLE [Concomitant]
  7. MIRTAZAPINE [Concomitant]
  8. VITAMINS [Concomitant]
  9. TYLENOL [Concomitant]

REACTIONS (3)
  - BACK INJURY [None]
  - FALL [None]
  - HAEMOGLOBIN DECREASED [None]
